FAERS Safety Report 9064866 (Version 1)
Quarter: 2013Q1

REPORT INFORMATION
  Report Type: Spontaneous
  Country: CA (occurrence: CA)
  Receive Date: 20130206
  Receipt Date: 20130206
  Transmission Date: 20140127
  Serious: Yes (Other)
  Sender: FDA-Public Use
  Company Number: CA-BAYER-2013-013868

PATIENT
  Age: 63 Year
  Sex: Female
  Weight: 95 kg

DRUGS (2)
  1. EXTAVIA [Suspect]
     Dosage: 8 IU, QOD
     Route: 058
  2. BETASERON [Suspect]
     Dosage: 8 IU, QOD
     Route: 058

REACTIONS (10)
  - Memory impairment [Unknown]
  - Retinal detachment [Unknown]
  - Abnormal sensation in eye [Unknown]
  - Gait disturbance [Unknown]
  - Fall [Unknown]
  - Foot fracture [Unknown]
  - Lower limb fracture [Unknown]
  - Head injury [Unknown]
  - Pain in extremity [Unknown]
  - Arthralgia [Unknown]
